FAERS Safety Report 8953244 (Version 1)
Quarter: 2012Q4

REPORT INFORMATION
  Report Type: Report from Study
  Country: NL (occurrence: NL)
  Receive Date: 20121206
  Receipt Date: 20121206
  Transmission Date: 20130627
  Serious: Yes (Hospitalization)
  Sender: FDA-Public Use
  Company Number: NL-ABBOTT-12P-114-1003226-00

PATIENT
  Age: 0 None
  Sex: Female
  Weight: 5.54 kg

DRUGS (1)
  1. SYNAGIS [Suspect]
     Indication: PREMATURE BABY
     Dosage: 15 mg/kg body weight
     Route: 030
     Dates: start: 2012

REACTIONS (5)
  - Lacrimation increased [Recovered/Resolved]
  - Pyrexia [Recovered/Resolved]
  - Cough [Not Recovered/Not Resolved]
  - Croup infectious [Recovered/Resolved]
  - Dyspnoea [Recovered/Resolved]
